FAERS Safety Report 8065950-6 (Version None)
Quarter: 2012Q1

REPORT INFORMATION
  Report Type: 
  Country: None (occurrence: None)
  Receive Date: 20120124
  Receipt Date: 20120113
  Transmission Date: 20120608
  Serious: Yes (Hospitalization)
  Sender: FDA-Public Use
  Company Number: FR-MILLENNIUM PHARMACEUTICALS, INC.-2012-00355

PATIENT

DRUGS (12)
  1. TOPALGIC                           /00599202/ [Concomitant]
     Dosage: UNK
     Dates: start: 20111206
  2. VITAMIN D [Concomitant]
     Dosage: 100000 UL, UNK
  3. SERETIDE                           /01420901/ [Concomitant]
  4. LANSOPRAZOLE [Concomitant]
  5. COLTRAMYL [Concomitant]
     Dosage: UNK
     Dates: start: 20111206
  6. TANGANIL                           /00129601/ [Concomitant]
     Dosage: UNK
     Dates: start: 20111206
  7. VELCADE [Suspect]
     Indication: MULTIPLE MYELOMA
     Dosage: 2.2 MG, UNK
     Route: 042
     Dates: start: 20111201, end: 20111206
  8. IRBESARTAN AND HYDROCHLOROTHIAZIDE [Concomitant]
  9. SPASFON                            /00765801/ [Concomitant]
     Dosage: UNK
     Dates: start: 20111206
  10. SPIRIVA [Concomitant]
     Dosage: 1 DF, UNK
  11. VOGALENE [Concomitant]
     Dosage: UNK
     Dates: start: 20111206
  12. PREDNISOLONE [Concomitant]

REACTIONS (3)
  - VOMITING [None]
  - PANCYTOPENIA [None]
  - BACK PAIN [None]
